FAERS Safety Report 15895942 (Version 1)
Quarter: 2019Q1

REPORT INFORMATION
  Report Type: Spontaneous
  Country: US (occurrence: US)
  Receive Date: 20190108
  Receipt Date: 20190108
  Transmission Date: 20190417
  Serious: No
  Sender: FDA-Public Use
  Company Number: None

PATIENT
  Age: 70 Year
  Sex: Female
  Weight: 38.1 kg

DRUGS (6)
  1. VINCRISTINE [Concomitant]
     Active Substance: VINCRISTINE
  2. METHOREXATE [Concomitant]
     Active Substance: METHOTREXATE SODIUM
  3. ERWINAZE [Suspect]
     Active Substance: ASPARAGINASE ERWINIA CHRYSANTHEMI
     Indication: B-CELL TYPE ACUTE LEUKAEMIA
     Route: 042
     Dates: start: 20181217, end: 20181220
  4. ERWINAZE [Suspect]
     Active Substance: ASPARAGINASE ERWINIA CHRYSANTHEMI
     Indication: HYPERSENSITIVITY
  5. DEXAMETHASONE. [Concomitant]
     Active Substance: DEXAMETHASONE
  6. DOXORUBICIN [Concomitant]
     Active Substance: DOXORUBICIN

REACTIONS (7)
  - Ammonia increased [None]
  - Product quality issue [None]
  - Nausea [None]
  - Vomiting [None]
  - Flushing [None]
  - Headache [None]
  - Infusion related reaction [None]

NARRATIVE: CASE EVENT DATE: 20181219
